FAERS Safety Report 16787262 (Version 2)
Quarter: 2019Q3

REPORT INFORMATION
  Report Type: Spontaneous
  Country: US (occurrence: US)
  Receive Date: 20190909
  Receipt Date: 20190912
  Transmission Date: 20191005
  Serious: No
  Sender: FDA-Public Use
  Company Number: US-PFIZER INC-2019384340

PATIENT
  Age: 94 Year
  Sex: Female
  Weight: 57 kg

DRUGS (1)
  1. PREMARIN [Suspect]
     Active Substance: ESTROGENS, CONJUGATED
     Indication: HORMONE REPLACEMENT THERAPY
     Dosage: 0.625 MG, 1X/DAY
     Route: 048
     Dates: start: 1962

REACTIONS (4)
  - Hypertrichosis [Not Recovered/Not Resolved]
  - Malaise [Not Recovered/Not Resolved]
  - Intentional product misuse [Unknown]
  - Drug ineffective [Not Recovered/Not Resolved]

NARRATIVE: CASE EVENT DATE: 201908
